FAERS Safety Report 6265880-6 (Version None)
Quarter: 2009Q3

REPORT INFORMATION
  Report Type: 
  Country: None (occurrence: None)
  Receive Date: 20090713
  Receipt Date: 20090630
  Transmission Date: 20100115
  Serious: Yes (Other)
  Sender: FDA-Public Use
  Company Number: GR-JNJFOC-20090609564

PATIENT

DRUGS (1)
  1. DORIBAX [Suspect]
     Indication: INFECTION
     Dosage: EVERY 8 HOURS
     Route: 041

REACTIONS (1)
  - BLOOD BILIRUBIN INCREASED [None]
